FAERS Safety Report 4365026-5 (Version None)
Quarter: 2004Q2

REPORT INFORMATION
  Report Type: 
  Country: None (occurrence: None)
  Receive Date: 20040524
  Receipt Date: 20040524
  Transmission Date: 20050107
  Serious: Yes (Hospitalization, Other)
  Sender: FDA-Public Use
  Company Number: None

PATIENT
  Age: 74 Year
  Sex: Male
  Weight: 65.7716 kg

DRUGS (2)
  1. AMIODARONE HCL [Suspect]
     Indication: ATRIAL FIBRILLATION
     Dosage: 1 PILL A DAY
     Dates: start: 20031001, end: 20040201
  2. TOPROL-XL [Concomitant]

REACTIONS (2)
  - BLINDNESS [None]
  - VISUAL DISTURBANCE [None]
